FAERS Safety Report 15330458 (Version 1)
Quarter: 2018Q3

REPORT INFORMATION
  Report Type: Spontaneous
  Country: US (occurrence: US)
  Receive Date: 20180824
  Receipt Date: 20180824
  Transmission Date: 20181010
  Serious: Yes (Other)
  Sender: FDA-Public Use
  Company Number: None

PATIENT
  Age: 44 Year
  Sex: Female
  Weight: 63.5 kg

DRUGS (4)
  1. MIRENA [Suspect]
     Active Substance: LEVONORGESTREL
     Dates: start: 20140620, end: 20180822
  2. DIAZEPAM. [Concomitant]
     Active Substance: DIAZEPAM
  3. PROTEIN SHAKES [Concomitant]
  4. MULTI VITAMIN [Concomitant]
     Active Substance: VITAMINS

REACTIONS (13)
  - Headache [None]
  - Bladder disorder [None]
  - Visual impairment [None]
  - Amnesia [None]
  - Nausea [None]
  - Dizziness [None]
  - Erythema nodosum [None]
  - Mood swings [None]
  - Feeling abnormal [None]
  - Vision blurred [None]
  - Tinnitus [None]
  - Anxiety [None]
  - Insomnia [None]

NARRATIVE: CASE EVENT DATE: 20180620
